FAERS Safety Report 13901759 (Version 1)
Quarter: 2017Q3

REPORT INFORMATION
  Report Type: Report from Study
  Country: None (occurrence: US)
  Receive Date: 20170824
  Receipt Date: 20170824
  Transmission Date: 20171127
  Serious: No
  Sender: FDA-Public Use
  Company Number: US-SWEDISH ORPHAN INTERNATIONAL AB-2015US0425

PATIENT
  Sex: Female
  Weight: 52.66 kg

DRUGS (2)
  1. KINERET [Suspect]
     Active Substance: ANAKINRA
     Indication: CRYOPYRIN ASSOCIATED PERIODIC SYNDROME
  2. KINERET [Suspect]
     Active Substance: ANAKINRA
     Indication: MUCKLE-WELLS SYNDROME
     Dosage: 100 MG
     Route: 058

REACTIONS (1)
  - Pregnancy [Recovered/Resolved]
